FAERS Safety Report 20447972 (Version 1)
Quarter: 2022Q1

REPORT INFORMATION
  Report Type: Spontaneous
  Country: US (occurrence: US)
  Receive Date: 20220209
  Receipt Date: 20220209
  Transmission Date: 20220424
  Serious: Yes (Hospitalization)
  Sender: FDA-Public Use
  Company Number: US-UNITED THERAPEUTICS-UNT-2022-002990

PATIENT
  Age: 56 Year
  Sex: Female

DRUGS (2)
  1. TYVASO [Suspect]
     Active Substance: TREPROSTINIL
     Indication: Product used for unknown indication
     Dosage: UNK
     Dates: start: 2021
  2. TYVASO [Suspect]
     Active Substance: TREPROSTINIL
     Dosage: 78 ?G, QID

REACTIONS (3)
  - Haemoglobin decreased [Recovered/Resolved]
  - Oedema [Recovered/Resolved]
  - Off label use [Unknown]

NARRATIVE: CASE EVENT DATE: 20220203
